FAERS Safety Report 8886911 (Version 2)
Quarter: 2014Q1

REPORT INFORMATION
  Report Type: Report from Study
  Country: US (occurrence: US)
  Receive Date: 20121105
  Receipt Date: 20140217
  Transmission Date: 20141002
  Serious: Yes (Hospitalization, Other)
  Sender: FDA-Public Use
  Company Number: US-ALEXION-A201200773

PATIENT
  Age: 2 Year
  Sex: Male
  Weight: 8.64 kg

DRUGS (11)
  1. SOLIRIS [Suspect]
     Indication: HAEMOLYTIC URAEMIC SYNDROME
     Dosage: 300 MG, UNK
     Route: 042
     Dates: start: 201202
  2. SOLIRIS [Suspect]
     Dosage: 300 MG, Q2W
     Route: 042
     Dates: start: 20120404
  3. POTASSIUM [Suspect]
     Indication: MINERAL SUPPLEMENTATION
     Dosage: 15 ML BID, (40 MEQ/14 ML ORAL LIQUID, 900 ML)
     Route: 048
  4. LASIX [Suspect]
     Indication: CARDIAC FAILURE CONGESTIVE
     Dosage: DECREASED
  5. LASIX [Suspect]
     Dosage: 2 ML TID, (10 MG/ML [LIQUID])
     Route: 048
     Dates: start: 201202
  6. CLONIDINE [Suspect]
     Indication: PRODUCT USED FOR UNKNOWN INDICATION
     Dosage: 0.3MG/24 HR (1 PATCH) TRANSDERMAL FILM, EXTENDED, Q1WK
     Route: 061
  7. TYLENOL INFANTS [Concomitant]
     Indication: PRODUCT USED FOR UNKNOWN INDICATION
     Dosage: 160 MG (1.6 ML), QID
     Route: 048
  8. AMLODIPINE [Concomitant]
     Indication: PRODUCT USED FOR UNKNOWN INDICATION
     Dosage: (1 MG/ML) 5 ML, BID
     Route: 048
  9. METOLAZONE [Concomitant]
     Indication: PRODUCT USED FOR UNKNOWN INDICATION
     Dosage: 5 MG ORAL TABLET, UNK
     Route: 048
  10. PENICILLIN V POTASSIUM [Concomitant]
     Indication: PRODUCT USED FOR UNKNOWN INDICATION
     Dosage: 5 MG, BID DAILY (250 MG ORAL TABLE: SEE INSTRUCTIONS)
     Route: 048
  11. THIAZIDES, PLAIN [Concomitant]
     Indication: PRODUCT USED FOR UNKNOWN INDICATION
     Dosage: UNK
     Route: 065

REACTIONS (15)
  - Blood urea increased [Recovered/Resolved]
  - Viral upper respiratory tract infection [Recovered/Resolved]
  - Dehydration [Unknown]
  - Natural killer cell count decreased [Unknown]
  - Hypertension [Not Recovered/Not Resolved]
  - Thrombocytopenia [Unknown]
  - Abdominal pain [Unknown]
  - Respiratory failure [Unknown]
  - Plasmapheresis [Unknown]
  - Eye swelling [Recovered/Resolved]
  - Blood potassium abnormal [Unknown]
  - Heart rate increased [Recovered/Resolved]
  - Oedema [Unknown]
  - Fatigue [Unknown]
  - Pain [Unknown]
